FAERS Safety Report 6248764-9 (Version None)
Quarter: 2009Q2

REPORT INFORMATION
  Report Type: 
  Country: None (occurrence: None)
  Receive Date: 20090624
  Receipt Date: 20090615
  Transmission Date: 20091009
  Serious: Yes (Death, Hospitalization)
  Sender: FDA-Public Use
  Company Number: ADE# 09-251DPR

PATIENT
  Age: 75 Year
  Sex: Female

DRUGS (3)
  1. DIGOXIN [Suspect]
     Indication: HEART RATE INCREASED
  2. BLOOD PRESSURE MEDICINES [Concomitant]
  3. CHOLESTEROL MEDICINES [Concomitant]

REACTIONS (2)
  - ABDOMINAL PAIN UPPER [None]
  - GASTROINTESTINAL DISORDER [None]
